FAERS Safety Report 9334542 (Version 2)
Quarter: 2013Q4

REPORT INFORMATION
  Report Type: Spontaneous
  Country: GB (occurrence: GB)
  Receive Date: 20130606
  Receipt Date: 20131025
  Transmission Date: 20140711
  Serious: Yes (Other)
  Sender: FDA-Public Use
  Company Number: GB-TEVA-409909ISR

PATIENT
  Age: 41 Year
  Sex: Male

DRUGS (2)
  1. RISPERIDONE [Suspect]
     Indication: PSYCHOTIC DISORDER
     Dosage: 8 MILLIGRAM DAILY;
     Route: 048
  2. RISPERIDONE [Suspect]
     Dosage: 3 MILLIGRAM DAILY;

REACTIONS (4)
  - Deep vein thrombosis [Recovered/Resolved]
  - Extrapyramidal disorder [Unknown]
  - Accidental overdose [Unknown]
  - Mobility decreased [Unknown]
